FAERS Safety Report 16325043 (Version 3)
Quarter: 2020Q1

REPORT INFORMATION
  Report Type: Spontaneous
  Country: BR (occurrence: BR)
  Receive Date: 20190517
  Receipt Date: 20200205
  Transmission Date: 20200409
  Serious: Yes (Other)
  Sender: FDA-Public Use
  Company Number: BR-NODEN PHARMA DAC-NOD-2019-000088

PATIENT
  Sex: Female
  Weight: 74 kg

DRUGS (3)
  1. CHOLESTEROL [Concomitant]
     Active Substance: CHOLESTEROL
     Indication: PRODUCT USED FOR UNKNOWN INDICATION
     Dosage: UNK
     Route: 065
     Dates: start: 2007
  2. RASILEZ [Suspect]
     Active Substance: ALISKIREN
     Indication: HYPERTENSION
     Dosage: 1 DOSAGE FORM, Q24H
     Route: 048
     Dates: start: 200704
  3. DIOVAN [Suspect]
     Active Substance: VALSARTAN
     Indication: PRODUCT USED FOR UNKNOWN INDICATION
     Dosage: 320 MILLIGRAM
     Route: 065

REACTIONS (10)
  - Blood pressure increased [Unknown]
  - Haemorrhoids thrombosed [Recovered/Resolved]
  - Decreased immune responsiveness [Not Recovered/Not Resolved]
  - Asthenia [Not Recovered/Not Resolved]
  - Nervousness [Unknown]
  - Tremor [Not Recovered/Not Resolved]
  - Emotional distress [Not Recovered/Not Resolved]
  - Panic disorder [Recovered/Resolved]
  - Weight decreased [Not Recovered/Not Resolved]
  - Malaise [Not Recovered/Not Resolved]

NARRATIVE: CASE EVENT DATE: 2011
